FAERS Safety Report 18002906 (Version 3)
Quarter: 2020Q3

REPORT INFORMATION
  Report Type: Report from Study
  Country: None (occurrence: US)
  Receive Date: 20200710
  Receipt Date: 20200729
  Transmission Date: 20201103
  Serious: Yes (Hospitalization, Other)
  Sender: FDA-Public Use
  Company Number: US-ABBVIE-20K-163-3473325-00

PATIENT
  Sex: Female
  Weight: 62.65 kg

DRUGS (6)
  1. CLARITIN [CLARITHROMYCIN] [Concomitant]
     Active Substance: CLARITHROMYCIN
     Indication: SINUS DISORDER
     Dosage: AS NEEDED
  2. ASPIRIN [ACETYLSALICYLIC ACID] [Concomitant]
     Active Substance: ASPIRIN
     Indication: PRODUCT USED FOR UNKNOWN INDICATION
  3. PEPCID AC [Concomitant]
     Active Substance: FAMOTIDINE
     Indication: PRODUCT USED FOR UNKNOWN INDICATION
     Dosage: AS NEEDED
  4. RINVOQ [Suspect]
     Active Substance: UPADACITINIB
     Dosage: TO BE TAKEN BY MOUTH
     Route: 048
     Dates: start: 202007
  5. RINVOQ [Suspect]
     Active Substance: UPADACITINIB
     Indication: RHEUMATOID ARTHRITIS
     Dosage: TO BE TAKEN BY MOUTH
     Route: 048
     Dates: start: 202002, end: 202006
  6. ROPINIROLE. [Concomitant]
     Active Substance: ROPINIROLE
     Indication: RESTLESS LEGS SYNDROME

REACTIONS (9)
  - Hip surgery [Unknown]
  - Cystitis [Recovered/Resolved]
  - Femur fracture [Recovering/Resolving]
  - Knee operation [Unknown]
  - Pain [Recovered/Resolved]
  - Rheumatoid arthritis [Unknown]
  - Fall [Recovering/Resolving]
  - Tibia fracture [Recovering/Resolving]
  - Arthropathy [Recovering/Resolving]

NARRATIVE: CASE EVENT DATE: 2020
